APPROVED DRUG PRODUCT: FOSCARNET SODIUM
Active Ingredient: FOSCARNET SODIUM
Strength: 6GM/250ML (24MG/ML)
Dosage Form/Route: SOLUTION;INTRAVENOUS
Application: A213987 | Product #001 | TE Code: AP
Applicant: SCIECURE LABORATORIES INC
Approved: Nov 29, 2023 | RLD: No | RS: No | Type: RX